FAERS Safety Report 6505064-7 (Version None)
Quarter: 2009Q4

REPORT INFORMATION
  Report Type: 
  Country: None (occurrence: None)
  Receive Date: 20091218
  Receipt Date: 20091207
  Transmission Date: 20100525
  Serious: No
  Sender: FDA-Public Use
  Company Number: US-JNJFOC-20091202844

PATIENT
  Sex: Male
  Weight: 88.45 kg

DRUGS (6)
  1. DURAGESIC-100 [Suspect]
     Indication: BACK PAIN
     Dosage: 1 PATCH EVERY 48 TO 72 HOURS
     Route: 062
     Dates: start: 19980101, end: 20091201
  2. DURAGESIC-100 [Suspect]
     Indication: PAIN
     Dosage: EVEY 48 TO 72 HOURS
     Route: 062
  3. TYLENOL (CAPLET) [Concomitant]
     Indication: PAIN
     Route: 048
  4. LORAZEPAM [Concomitant]
     Indication: SLEEP DISORDER
     Route: 048
  5. RESTORIL [Concomitant]
     Indication: SLEEP DISORDER
     Route: 048
  6. DESYREL [Concomitant]
     Indication: SLEEP DISORDER
     Route: 048

REACTIONS (3)
  - DRUG PRESCRIBING ERROR [None]
  - PRODUCT ADHESION ISSUE [None]
  - WRONG TECHNIQUE IN DRUG USAGE PROCESS [None]
